FAERS Safety Report 14048557 (Version 2)
Quarter: 2017Q4

REPORT INFORMATION
  Report Type: Spontaneous
  Country: DE (occurrence: DE)
  Receive Date: 20171005
  Receipt Date: 20171016
  Transmission Date: 20180321
  Serious: Yes (Hospitalization)
  Sender: FDA-Public Use
  Company Number: DE-SA-2017SA177934

PATIENT
  Age: 77 Year

DRUGS (1)
  1. BCG FOR IMMUNOTHERAPY [Suspect]
     Active Substance: BACILLUS CALMETTE-GUERIN ANTIGEN, UNSPECIFIED SUBSTRAIN
     Indication: BLADDER CANCER
     Route: 043

REACTIONS (17)
  - C-reactive protein increased [Recovering/Resolving]
  - Hypoxia [Recovering/Resolving]
  - Pulmonary tuberculosis [Recovering/Resolving]
  - Bone marrow granuloma [Recovering/Resolving]
  - Urinary tract infection [Recovering/Resolving]
  - Asthenia [Recovering/Resolving]
  - Dyspnoea [Recovering/Resolving]
  - Pancytopenia [Recovering/Resolving]
  - Dysuria [Recovering/Resolving]
  - Tongue coated [Unknown]
  - Disseminated Bacillus Calmette-Guerin infection [Recovering/Resolving]
  - Hepatic enzyme increased [Recovering/Resolving]
  - Pyrexia [Recovering/Resolving]
  - Tongue dry [Unknown]
  - Anaemia [Unknown]
  - Ureteric stenosis [Recovering/Resolving]
  - Cyanosis [Unknown]
